FAERS Safety Report 22145289 (Version 1)
Quarter: 2023Q1

REPORT INFORMATION
  Report Type: Other
  Country: None (occurrence: US)
  Receive Date: 20230328
  Receipt Date: 20230328
  Transmission Date: 20230417
  Serious: Yes (Hospitalization, Other)
  Sender: FDA-Public Use
  Company Number: US-VGYAAN Pharmaceuticals LLC-2139599

PATIENT
  Age: 65 Year
  Sex: Male

DRUGS (2)
  1. CARBAMAZEPINE [Suspect]
     Active Substance: CARBAMAZEPINE
     Indication: Focal dyscognitive seizures
     Route: 065
  2. PHENOBARBITAL [Concomitant]
     Active Substance: PHENOBARBITAL
     Route: 065

REACTIONS (4)
  - Asterixis [Recovered/Resolved]
  - Hyperammonaemia [Unknown]
  - Metabolic encephalopathy [Unknown]
  - Toxicity to various agents [Recovered/Resolved]
